FAERS Safety Report 7981549-1 (Version None)
Quarter: 2011Q4

REPORT INFORMATION
  Report Type: 
  Country: None (occurrence: None)
  Receive Date: 20111215
  Receipt Date: 20111213
  Transmission Date: 20120403
  Serious: Yes (Hospitalization, Other)
  Sender: FDA-Public Use
  Company Number: US-PFIZER INC-2011233964

PATIENT
  Sex: Male

DRUGS (1)
  1. LYRICA [Suspect]
     Dosage: UNK
     Route: 048
     Dates: start: 20101228, end: 20110501

REACTIONS (15)
  - VISUAL IMPAIRMENT [None]
  - BLOOD TRIGLYCERIDES INCREASED [None]
  - DIABETES MELLITUS [None]
  - INTERVERTEBRAL DISC PROTRUSION [None]
  - MENTAL DISORDER [None]
  - CONTUSION [None]
  - NEUROPATHY PERIPHERAL [None]
  - BLOOD CHOLESTEROL INCREASED [None]
  - PERONEAL NERVE PALSY [None]
  - RENAL DISORDER [None]
  - CONSTIPATION [None]
  - JOINT INJURY [None]
  - MUSCLE SPASMS [None]
  - BACK PAIN [None]
  - RADICULAR SYNDROME [None]
